FAERS Safety Report 9200225 (Version 1)
Quarter: 2013Q1

REPORT INFORMATION
  Report Type: Other
  Country: US (occurrence: US)
  Receive Date: 20130329
  Receipt Date: 20130329
  Transmission Date: 20140127
  Serious: Yes (Life-Threatening)
  Sender: FDA-Public Use
  Company Number: US-BRISTOL-MYERS SQUIBB COMPANY-18707802

PATIENT
  Age: 42 Year
  Sex: Male

DRUGS (3)
  1. ARIPIPRAZOLE [Suspect]
     Indication: SCHIZOPHRENIA
     Route: 048
  2. QUETIAPINE [Suspect]
     Indication: SCHIZOPHRENIA
     Route: 048
  3. FAMOTIDINE [Suspect]

REACTIONS (3)
  - Cardiac arrest [Unknown]
  - Torsade de pointes [Unknown]
  - Electrocardiogram QT prolonged [Recovered/Resolved]
